FAERS Safety Report 20569747 (Version 1)
Quarter: 2022Q1

REPORT INFORMATION
  Report Type: Spontaneous
  Country: JP (occurrence: JP)
  Receive Date: 20220309
  Receipt Date: 20220309
  Transmission Date: 20220423
  Serious: Yes (Other)
  Sender: FDA-Public Use
  Company Number: JP-NBI-J202204149BIPI

PATIENT
  Age: 76 Year

DRUGS (4)
  1. PRAMIPEXOLE [Suspect]
     Active Substance: PRAMIPEXOLE
     Indication: Parkinson^s disease
     Route: 048
  2. PRAMIPEXOLE [Suspect]
     Active Substance: PRAMIPEXOLE
     Route: 048
     Dates: start: 2021
  3. DOPARL [Concomitant]
     Indication: Product used for unknown indication
     Route: 048
  4. ONGENTYS [Concomitant]
     Active Substance: OPICAPONE
     Indication: Product used for unknown indication
     Route: 048

REACTIONS (2)
  - Drug dependence [Unknown]
  - Renal impairment [Unknown]
